FAERS Safety Report 16662458 (Version 2)
Quarter: 2020Q1

REPORT INFORMATION
  Report Type: Report from Study
  Country: US (occurrence: US)
  Receive Date: 20190802
  Receipt Date: 20200129
  Transmission Date: 20200409
  Serious: No
  Sender: FDA-Public Use
  Company Number: US-EXELIXIS-CABO-19018146

PATIENT
  Sex: Male

DRUGS (2)
  1. CABOMETYX [Suspect]
     Active Substance: CABOZANTINIB S-MALATE
     Indication: RENAL CANCER
     Dosage: 60 MG, UNK (WITHOUT FOOD)
     Dates: start: 20181223
  2. CABOMETYX [Suspect]
     Active Substance: CABOZANTINIB S-MALATE
     Dosage: 60 MG, QOD
     Dates: start: 20190213

REACTIONS (6)
  - Dry skin [Unknown]
  - Nausea [Recovering/Resolving]
  - Pain in extremity [Unknown]
  - Fatigue [Recovering/Resolving]
  - Rash [Unknown]
  - Dry mouth [Unknown]
